FAERS Safety Report 5874245-8 (Version None)
Quarter: 2008Q3

REPORT INFORMATION
  Report Type: 
  Country: None (occurrence: None)
  Receive Date: 20080908
  Receipt Date: 20080826
  Transmission Date: 20090109
  Serious: Yes (Hospitalization, Other)
  Sender: FDA-Public Use
  Company Number: ES-ELI_LILLY_AND_COMPANY-ES200808005765

PATIENT
  Age: 82 Year
  Sex: Female

DRUGS (11)
  1. FORTEO [Suspect]
     Indication: OSTEOPOROSIS
     Dosage: 20 UG, UNKNOWN
     Route: 058
     Dates: start: 20080101, end: 20080803
  2. NOLOTIL [Concomitant]
     Dosage: UNK, UNKNOWN
     Route: 065
  3. ACETAMINOPHEN [Concomitant]
     Dosage: UNK, UNKNOWN
     Route: 065
  4. MASDIL [Concomitant]
     Dosage: UNK, UNKNOWN
     Route: 065
  5. ALDACTONE [Concomitant]
     Dosage: UNK, UNKNOWN
     Route: 065
  6. SEGURIL [Concomitant]
     Dosage: UNK, UNKNOWN
     Route: 065
  7. SIMVASTATIN [Concomitant]
     Dosage: UNK, UNKNOWN
     Route: 065
  8. PLANTABEN [Concomitant]
     Dosage: UNK, UNKNOWN
     Route: 065
  9. DUPHALAC [Concomitant]
     Dosage: UNK, UNKNOWN
     Route: 065
  10. MOVICOL [Concomitant]
     Dosage: UNK, UNKNOWN
     Route: 065
  11. CALCIUM [Concomitant]
     Dosage: UNK, UNKNOWN
     Route: 065

REACTIONS (8)
  - BLOOD CHOLESTEROL INCREASED [None]
  - BLOOD TRIGLYCERIDES INCREASED [None]
  - DIVERTICULUM [None]
  - GASTROINTESTINAL INFECTION [None]
  - HAEMORRHOIDS [None]
  - INTESTINAL OBSTRUCTION [None]
  - PNEUMONIA [None]
  - RESPIRATORY DISORDER [None]
